FAERS Safety Report 10053428 (Version 2)
Quarter: 2014Q2

REPORT INFORMATION
  Report Type: Report from Study
  Country: JP (occurrence: JP)
  Receive Date: 20140402
  Receipt Date: 20140408
  Transmission Date: 20141212
  Serious: No
  Sender: FDA-Public Use
  Company Number: JP-SHIRE-JP201400994

PATIENT
  Age: 11 Year
  Sex: Male

DRUGS (6)
  1. IDURSULFASE [Suspect]
     Indication: MUCOPOLYSACCHARIDOSIS II
     Dosage: 12 MG, UNKNOWN
     Route: 041
     Dates: start: 20081126
  2. IDURSULFASE [Suspect]
     Dosage: 0.5 MG/KG, UNKNOWN
     Route: 041
  3. IDURSULFASE [Suspect]
     Dosage: 16 MG, UNKNOWN
     Route: 041
     Dates: start: 20120105
  4. IDURSULFASE [Suspect]
     Dosage: UNK, UNKNOWN (REDUCED)
     Route: 041
  5. FEXOFENADINE HCL [Concomitant]
     Indication: PREMEDICATION
     Dosage: UNK, UNKNOWN
     Route: 065
     Dates: start: 20100930
  6. TRANILAST [Concomitant]
     Indication: PREMEDICATION
     Dosage: UNK, UNKNOWN
     Route: 065
     Dates: start: 20101007

REACTIONS (5)
  - Cough [Recovered/Resolved]
  - Rash [Recovered/Resolved]
  - Erythema [Recovered/Resolved]
  - Wheezing [Recovered/Resolved]
  - Infusion related reaction [Recovering/Resolving]
